FAERS Safety Report 8437672-0 (Version None)
Quarter: 2012Q2

REPORT INFORMATION
  Report Type: 
  Country: None (occurrence: None)
  Receive Date: 20120614
  Receipt Date: 20120508
  Transmission Date: 20120825
  Serious: No
  Sender: FDA-Public Use
  Company Number: US-AMGEN-USASP2012028904

PATIENT
  Age: 68 Year
  Sex: Female

DRUGS (3)
  1. PRAVASTATIN [Concomitant]
  2. PROLIA [Suspect]
     Indication: OSTEOPOROSIS POSTMENOPAUSAL
     Dosage: UNK UNK, Q6MO
     Dates: start: 20120227
  3. PLAVIX [Concomitant]

REACTIONS (9)
  - DRY MOUTH [None]
  - ORAL PAIN [None]
  - ABDOMINAL PAIN LOWER [None]
  - MASTICATION DISORDER [None]
  - CYSTITIS [None]
  - LIP SWELLING [None]
  - ECZEMA [None]
  - BACK PAIN [None]
  - GINGIVAL PAIN [None]
